FAERS Safety Report 12226425 (Version 5)
Quarter: 2016Q3

REPORT INFORMATION
  Report Type: Report from Study
  Country: DE (occurrence: DE)
  Receive Date: 20160331
  Receipt Date: 20160825
  Transmission Date: 20161109
  Serious: Yes (Death, Other)
  Sender: FDA-Public Use
  Company Number: DE-BRISTOL-MYERS SQUIBB COMPANY-BMS-2016-023421

PATIENT
  Age: 87 Year
  Sex: Male
  Weight: 58 kg

DRUGS (1)
  1. APIXABAN [Suspect]
     Active Substance: APIXABAN
     Indication: CEREBROVASCULAR ACCIDENT PROPHYLAXIS
     Dosage: 2.5 MG, BID
     Route: 048
     Dates: start: 20130109, end: 20151214

REACTIONS (6)
  - Sepsis [Fatal]
  - Hypertensive crisis [Unknown]
  - Arteritis [Unknown]
  - Haematoma [Unknown]
  - Cerebrovascular accident [Unknown]
  - Cardiac failure [Unknown]

NARRATIVE: CASE EVENT DATE: 20151215
